FAERS Safety Report 21707667 (Version 1)
Quarter: 2022Q4

REPORT INFORMATION
  Report Type: Report from Study
  Country: US (occurrence: US)
  Receive Date: 20221209
  Receipt Date: 20221209
  Transmission Date: 20230112
  Serious: No
  Sender: FDA-Public Use
  Company Number: US-ABBVIE-4189202

PATIENT
  Sex: Female

DRUGS (1)
  1. HUMIRA [Suspect]
     Active Substance: ADALIMUMAB
     Indication: Product used for unknown indication
     Route: 058

REACTIONS (5)
  - Pain [Not Recovered/Not Resolved]
  - Paraesthesia [Unknown]
  - Back disorder [Unknown]
  - Psoriasis [Recovered/Resolved]
  - Bone pain [Not Recovered/Not Resolved]
